FAERS Safety Report 7882621-7 (Version None)
Quarter: 2011Q4

REPORT INFORMATION
  Report Type: 
  Country: None (occurrence: None)
  Receive Date: 20111101
  Receipt Date: 20110617
  Transmission Date: 20120403
  Serious: No
  Sender: FDA-Public Use
  Company Number: US-AMGEN-USASP2011031064

PATIENT
  Sex: Female

DRUGS (1)
  1. ENBREL [Suspect]
     Indication: RHEUMATOID ARTHRITIS
     Dosage: 50 MG, QWK
     Dates: start: 20101207, end: 20110501

REACTIONS (6)
  - BALANCE DISORDER [None]
  - NAUSEA [None]
  - SOMNOLENCE [None]
  - DIZZINESS [None]
  - SWELLING FACE [None]
  - HYPOAESTHESIA [None]
